FAERS Safety Report 23299216 (Version 7)
Quarter: 2024Q4

REPORT INFORMATION
  Report Type: Report from Study
  Country: CA (occurrence: CA)
  Receive Date: 20231215
  Receipt Date: 20241025
  Transmission Date: 20250115
  Serious: Yes (Hospitalization)
  Sender: JOHNSON AND JOHNSON
  Company Number: CA-JNJFOC-20231157855

PATIENT
  Age: 73 Year
  Sex: Female

DRUGS (3)
  1. REMICADE [Suspect]
     Active Substance: INFLIXIMAB
     Indication: Rheumatoid arthritis
     Route: 041
     Dates: start: 20231011, end: 20231011
  2. REMICADE [Suspect]
     Active Substance: INFLIXIMAB
     Route: 041
  3. REMICADE [Suspect]
     Active Substance: INFLIXIMAB
     Route: 041
     Dates: start: 20240228, end: 20240228

REACTIONS (8)
  - Urosepsis [Recovered/Resolved]
  - Infection [Unknown]
  - Blood pressure increased [Unknown]
  - Hospitalisation [Unknown]
  - Lower limb fracture [Recovering/Resolving]
  - Tibia fracture [Not Recovered/Not Resolved]
  - Fall [Unknown]
  - Cheilitis [Unknown]

NARRATIVE: CASE EVENT DATE: 20240101
